FAERS Safety Report 15057707 (Version 1)
Quarter: 2018Q2

REPORT INFORMATION
  Report Type: Spontaneous
  Country: FR (occurrence: FR)
  Receive Date: 20180625
  Receipt Date: 20180625
  Transmission Date: 20180711
  Serious: Yes (Hospitalization)
  Sender: FDA-Public Use
  Company Number: FR-SUN PHARMACEUTICAL INDUSTRIES LTD-2018RR-176508

PATIENT
  Age: 14 Year
  Sex: Female
  Weight: 46 kg

DRUGS (1)
  1. IBUPROFEN. [Suspect]
     Active Substance: IBUPROFEN
     Indication: POISONING DELIBERATE
     Dosage: 9.6 G, UNK
     Route: 048
     Dates: start: 20180518, end: 20180518

REACTIONS (4)
  - Metabolic acidosis [Recovered/Resolved]
  - Blood creatinine increased [Unknown]
  - Vomiting [Recovered/Resolved]
  - Coma [Recovered/Resolved]

NARRATIVE: CASE EVENT DATE: 20180518
